FAERS Safety Report 9333013 (Version 1)
Quarter: 2013Q2

REPORT INFORMATION
  Report Type: Spontaneous
  Country: US (occurrence: US)
  Receive Date: 20130606
  Receipt Date: 20130606
  Transmission Date: 20140414
  Serious: No
  Sender: FDA-Public Use
  Company Number: US-PFIZER INC-2013171690

PATIENT
  Sex: Female

DRUGS (3)
  1. LYRICA [Suspect]
     Indication: PELVIC PAIN
     Dosage: 25 MG, 1X/DAY
     Route: 048
  2. LYRICA [Suspect]
     Dosage: 175 MG, 1X/DAY
     Route: 048
  3. LYRICA [Suspect]
     Dosage: UNK, 1X/DAY
     Route: 048

REACTIONS (2)
  - Fatigue [Unknown]
  - Pain [Unknown]
